FAERS Safety Report 9249542 (Version 1)
Quarter: 2013Q2

REPORT INFORMATION
  Report Type: Spontaneous
  Country: US (occurrence: US)
  Receive Date: 20130423
  Receipt Date: 20130423
  Transmission Date: 20140414
  Serious: No
  Sender: FDA-Public Use
  Company Number: US-ASTRAZENECA-2013SE23017

PATIENT
  Age: 58 Year
  Sex: Male
  Weight: 98.9 kg

DRUGS (11)
  1. OMEPRAZOLE [Suspect]
     Route: 048
  2. CRESTOR [Suspect]
     Indication: BLOOD CHOLESTEROL INCREASED
     Route: 048
     Dates: start: 20130212, end: 20130305
  3. HUMALOG [Concomitant]
  4. VICTOSA [Concomitant]
  5. LYRICA [Concomitant]
  6. DIOVAN [Concomitant]
  7. MILOXICAM [Concomitant]
  8. METFORMIN [Concomitant]
  9. BUPROPION [Concomitant]
  10. CO-Q-10 [Concomitant]
  11. BABY ASPIRIN [Concomitant]

REACTIONS (2)
  - Pain in extremity [Unknown]
  - Muscle spasms [Unknown]
